FAERS Safety Report 6287862-0 (Version None)
Quarter: 2009Q3

REPORT INFORMATION
  Report Type: 
  Country: None (occurrence: None)
  Receive Date: 20090729
  Receipt Date: 20071112
  Transmission Date: 20100115
  Serious: Yes (Other)
  Sender: FDA-Public Use
  Company Number: US-ASTRAZENECA-2006UW22089

PATIENT
  Age: 16525 Day
  Sex: Male
  Weight: 134.3 kg

DRUGS (15)
  1. SEROQUEL [Suspect]
     Indication: INSOMNIA
     Route: 048
     Dates: start: 20040101, end: 20060501
  2. SEROQUEL [Suspect]
     Indication: TACHYPHRENIA
     Route: 048
     Dates: start: 20040101, end: 20060501
  3. SEROQUEL [Suspect]
     Indication: SLEEP DISORDER
     Route: 048
     Dates: start: 20040101, end: 20060501
  4. SEROQUEL [Suspect]
     Dosage: 25-400 MG FLUCTUATING
     Route: 048
     Dates: start: 20030924
  5. SEROQUEL [Suspect]
     Dosage: 25-400 MG FLUCTUATING
     Route: 048
     Dates: start: 20030924
  6. SEROQUEL [Suspect]
     Dosage: 25-400 MG FLUCTUATING
     Route: 048
     Dates: start: 20030924
  7. GLYBURIDE [Concomitant]
     Indication: DIABETES MELLITUS
     Route: 048
     Dates: start: 20031201
  8. GEMFIBROZIL [Concomitant]
     Indication: BLOOD TRIGLYCERIDES INCREASED
     Route: 048
     Dates: start: 20031211
  9. GEMFIBROZIL [Concomitant]
     Indication: BLOOD CHOLESTEROL INCREASED
     Route: 048
     Dates: start: 20031211
  10. METFORMIN [Concomitant]
     Indication: DIABETES MELLITUS
     Route: 048
     Dates: start: 20031201
  11. ORLISTAT [Concomitant]
     Indication: WEIGHT DECREASED
     Route: 048
     Dates: start: 20040610
  12. SILDENAFIL CITRATE [Concomitant]
     Dosage: 1.5 TABLET
     Route: 048
     Dates: start: 20050309
  13. LISINOPRIL [Concomitant]
     Route: 048
     Dates: start: 20051220
  14. ZOLPIDEM [Concomitant]
     Route: 048
     Dates: start: 20060511
  15. INSULIN [Concomitant]
     Dosage: 30 UNIT MORNING AND 38 UNIT EVENING
     Route: 058
     Dates: start: 20070726

REACTIONS (5)
  - DIABETES MELLITUS [None]
  - DIABETES MELLITUS INADEQUATE CONTROL [None]
  - DIABETIC NEPHROPATHY [None]
  - TYPE 1 DIABETES MELLITUS [None]
  - TYPE 2 DIABETES MELLITUS [None]
